FAERS Safety Report 9954545 (Version 1)
Quarter: 2014Q1

REPORT INFORMATION
  Report Type: Spontaneous
  Country: US (occurrence: US)
  Receive Date: 20140304
  Receipt Date: 20140304
  Transmission Date: 20141002
  Serious: No
  Sender: FDA-Public Use
  Company Number: US-B.I. PHARMACEUTICALS,INC./RIDGEFIELD-2014-BI-09479BP

PATIENT
  Age: 72 Year
  Sex: Male
  Weight: 104 kg

DRUGS (11)
  1. PRADAXA [Suspect]
     Indication: PRODUCT USED FOR UNKNOWN INDICATION
     Route: 048
     Dates: start: 201203, end: 201203
  2. PRADAXA [Suspect]
     Route: 048
     Dates: start: 20140211
  3. PREDNISONE [Concomitant]
     Dosage: 15 NR
     Route: 065
  4. HYDROXYCHLOROQUINE SULFATE [Concomitant]
     Dosage: 400 MG
     Route: 065
  5. CELLCEPT [Concomitant]
     Dosage: 2000 MG
     Route: 065
  6. CALCIUM CITRATE [Concomitant]
     Route: 065
  7. VITAMIN D3 [Concomitant]
     Route: 065
  8. OMEPRAZOLE [Concomitant]
     Dosage: 40 MG
     Route: 065
  9. CARDIZEM [Concomitant]
     Dosage: 240 MG
     Route: 065
  10. CARVEDILOL [Concomitant]
     Dosage: 12.5 MG
     Route: 065
  11. SPIRONOLACTONE [Concomitant]
     Route: 065

REACTIONS (1)
  - Atrial fibrillation [Unknown]
